FAERS Safety Report 20745927 (Version 1)
Quarter: 2022Q2

REPORT INFORMATION
  Report Type: Spontaneous
  Country: US (occurrence: None)
  Receive Date: 20220424
  Receipt Date: 20220424
  Transmission Date: 20220721
  Serious: No
  Sender: FDA-Public Use
  Company Number: None

PATIENT
  Age: 28 Year
  Sex: Male
  Weight: 81 kg

DRUGS (4)
  1. ZYRTEC [Suspect]
     Active Substance: CETIRIZINE HYDROCHLORIDE
     Indication: Asthma
     Dates: start: 20100101
  2. TRIAMCINALONE OINTMENT [Concomitant]
  3. VITAMIN D [Concomitant]
  4. ZYRTEC [Concomitant]
     Active Substance: CETIRIZINE HYDROCHLORIDE

REACTIONS (4)
  - Rhinitis [None]
  - Pruritus [None]
  - Conjunctivitis [None]
  - Withdrawal syndrome [None]

NARRATIVE: CASE EVENT DATE: 20220424
